FAERS Safety Report 9631230 (Version 1)
Quarter: 2013Q4

REPORT INFORMATION
  Report Type: Spontaneous
  Country: IT (occurrence: IT)
  Receive Date: 20131018
  Receipt Date: 20131018
  Transmission Date: 20140711
  Serious: Yes (Other)
  Sender: FDA-Public Use
  Company Number: IT-MYLANLABS-2013S1022736

PATIENT
  Sex: Male

DRUGS (4)
  1. STAVUDINE [Suspect]
     Indication: HIV INFECTION
     Route: 064
  2. DIDANOSINE [Suspect]
     Indication: HIV INFECTION
     Route: 064
  3. NELFINAVIR [Suspect]
     Indication: HIV INFECTION
     Route: 064
  4. ZIDOVUDINE [Suspect]
     Route: 065

REACTIONS (5)
  - Intracranial haemangioma [Recovering/Resolving]
  - Arachnoid cyst [Not Recovered/Not Resolved]
  - Weight increased [Recovered/Resolved]
  - Irritability [Recovered/Resolved]
  - Exposure during pregnancy [Recovered/Resolved]
